FAERS Safety Report 21989858 (Version 1)
Quarter: 2023Q1

REPORT INFORMATION
  Report Type: Spontaneous
  Country: KR (occurrence: KR)
  Receive Date: 20230214
  Receipt Date: 20230214
  Transmission Date: 20230417
  Serious: Yes (Death, Other)
  Sender: FDA-Public Use
  Company Number: KR-PFIZER INC-PV202300028459

PATIENT
  Age: 59 Year
  Sex: Female

DRUGS (1)
  1. IBRANCE [Suspect]
     Active Substance: PALBOCICLIB
     Indication: Breast cancer
     Dosage: 125 MG, CYCLIC (1 CAP RIGHT AFTER BREAKFAST OR WITH MEALS FOR 21 DAYS, 1 WEEK OFF)
     Route: 048

REACTIONS (2)
  - Neoplasm progression [Fatal]
  - Diabetes mellitus [Unknown]
